FAERS Safety Report 18604590 (Version 1)
Quarter: 2020Q4

REPORT INFORMATION
  Report Type: Report from Study
  Country: None (occurrence: US)
  Receive Date: 20201211
  Receipt Date: 20201211
  Transmission Date: 20210114
  Serious: Yes (Hospitalization)
  Sender: FDA-Public Use
  Company Number: US-ABBVIE-20K-163-3686014-00

PATIENT
  Sex: Male

DRUGS (1)
  1. HUMIRA [Suspect]
     Active Substance: ADALIMUMAB
     Indication: RHEUMATOID ARTHRITIS
     Dosage: HUMIRA: CITRATR FREE
     Route: 058

REACTIONS (6)
  - Staphylococcal infection [Unknown]
  - Purulence [Unknown]
  - Gait inability [Unknown]
  - Muscle atrophy [Unknown]
  - Near death experience [Unknown]
  - Joint abscess [Unknown]
